FAERS Safety Report 6580421-1 (Version None)
Quarter: 2010Q1

REPORT INFORMATION
  Report Type: 
  Country: None (occurrence: None)
  Receive Date: 20100212
  Receipt Date: 20100204
  Transmission Date: 20100710
  Serious: Yes (Other)
  Sender: FDA-Public Use
  Company Number: PHHY2010FR06266

PATIENT
  Age: 78 Year
  Sex: Male

DRUGS (1)
  1. RASILEZ [Suspect]
     Indication: HYPERTENSION
     Dosage: 150 MG, UNK

REACTIONS (4)
  - DYSPNOEA [None]
  - FLUID RETENTION [None]
  - PULMONARY OEDEMA [None]
  - WEIGHT INCREASED [None]
